FAERS Safety Report 7266286-3 (Version None)
Quarter: 2011Q1

REPORT INFORMATION
  Report Type: 
  Country: None (occurrence: None)
  Receive Date: 20110131
  Receipt Date: 20110124
  Transmission Date: 20110831
  Serious: Yes (Other)
  Sender: FDA-Public Use
  Company Number: AT-MEDIMMUNE-MEDI-0012355

PATIENT
  Sex: Male
  Weight: 7.69 kg

DRUGS (2)
  1. SYNAGIS [Suspect]
     Route: 030
     Dates: start: 20101124, end: 20110111
  2. NUTRINI [Concomitant]
     Route: 048

REACTIONS (3)
  - HYPERHIDROSIS [None]
  - TREMOR [None]
  - INSOMNIA [None]
